FAERS Safety Report 20887116 (Version 1)
Quarter: 2022Q2

REPORT INFORMATION
  Report Type: Spontaneous
  Country: FR (occurrence: FR)
  Receive Date: 20220528
  Receipt Date: 20220528
  Transmission Date: 20220720
  Serious: Yes (Hospitalization)
  Sender: FDA-Public Use
  Company Number: None

PATIENT
  Age: 32 Year
  Sex: Male
  Weight: 92 kg

DRUGS (3)
  1. IBUPROFEN [Suspect]
     Active Substance: IBUPROFEN
     Indication: Odynophagia
     Route: 048
     Dates: start: 20220404, end: 202204
  2. VITAMIN B1 [Suspect]
     Active Substance: THIAMINE HYDROCHLORIDE
     Indication: Odynophagia
     Route: 048
     Dates: start: 20220404, end: 202204
  3. PSEUDOEPHEDRINE HYDROCHLORIDE [Suspect]
     Active Substance: PSEUDOEPHEDRINE HYDROCHLORIDE
     Indication: Odynophagia
     Route: 048
     Dates: start: 20220404, end: 202204

REACTIONS (1)
  - Rheumatoid vasculitis [Recovered/Resolved]

NARRATIVE: CASE EVENT DATE: 20220407
